FAERS Safety Report 20360593 (Version 7)
Quarter: 2023Q2

REPORT INFORMATION
  Report Type: Report from Study
  Country: JP (occurrence: JP)
  Receive Date: 20220121
  Receipt Date: 20230627
  Transmission Date: 20230721
  Serious: Yes (Death)
  Sender: FDA-Public Use
  Company Number: JP-SAKK-2022SA017185AA

PATIENT
  Age: 59 Year
  Sex: Female
  Weight: 56 kg

DRUGS (7)
  1. SARILUMAB [Suspect]
     Active Substance: SARILUMAB
     Indication: Rheumatoid arthritis
     Dosage: 200 MG, QOW
     Route: 058
     Dates: start: 20200605, end: 202103
  2. PREDNISOLONE [Suspect]
     Active Substance: PREDNISOLONE
     Indication: Rheumatoid arthritis
     Dosage: 3 TABLETS (1 TABLET: 1 MG), BID
     Route: 048
     Dates: start: 20200925, end: 20210308
  3. PREDNISOLONE [Suspect]
     Active Substance: PREDNISOLONE
     Dosage: 8 MG, BID
     Route: 048
     Dates: start: 20200703, end: 20200924
  4. SULFASALAZINE [Suspect]
     Active Substance: SULFASALAZINE
     Indication: Rheumatoid arthritis
     Dosage: 2 TABLETS (1 TABLET: 250 MG), BID
     Route: 048
     Dates: start: 20200925, end: 20210308
  5. IGURATIMOD [Suspect]
     Active Substance: IGURATIMOD
     Indication: Rheumatoid arthritis
     Dosage: 1 TABLET (25 MG), QD
     Route: 048
     Dates: start: 20201106, end: 20210308
  6. CALONAL [Concomitant]
     Active Substance: ACETAMINOPHEN
     Indication: Rheumatoid arthritis
     Dosage: 2 TABLETS, TID
     Route: 048
     Dates: start: 20200925, end: 20210308
  7. REBAMIPIDE [Concomitant]
     Active Substance: REBAMIPIDE
     Indication: Gastritis prophylaxis
     Dosage: 1 TABLET (100 MG), BID
     Route: 048
     Dates: start: 20200125, end: 20210308

REACTIONS (1)
  - Death [Fatal]

NARRATIVE: CASE EVENT DATE: 20210309
